FAERS Safety Report 5877884-3 (Version None)
Quarter: 2008Q3

REPORT INFORMATION
  Report Type: 
  Country: None (occurrence: None)
  Receive Date: 20080911
  Receipt Date: 20080905
  Transmission Date: 20090109
  Serious: Yes (Other)
  Sender: FDA-Public Use
  Company Number: GB-ASTRAZENECA-2008GB01674

PATIENT
  Age: 77 Year
  Sex: Male

DRUGS (7)
  1. ZOLADEX [Suspect]
     Indication: PROSTATE CANCER
     Route: 058
     Dates: start: 20080101
  2. SEROTIDE [Concomitant]
  3. CYPROTERONE [Concomitant]
  4. IPOTOPIUM [Concomitant]
  5. BRUFEN [Concomitant]
  6. ACETAMINOPHEN [Concomitant]
  7. ALBUTEROL SPIROS [Concomitant]

REACTIONS (1)
  - ENDOCARDITIS [None]
